FAERS Safety Report 15080968 (Version 1)
Quarter: 2018Q2

REPORT INFORMATION
  Report Type: Spontaneous
  Country: US (occurrence: US)
  Receive Date: 20180628
  Receipt Date: 20180628
  Transmission Date: 20180711
  Serious: No
  Sender: FDA-Public Use
  Company Number: US-GLENMARK PHARMACEUTICALS-2018GMK032100

PATIENT

DRUGS (1)
  1. MOMETASONE FUROATE. [Suspect]
     Active Substance: MOMETASONE FUROATE
     Indication: PRURITUS
     Dosage: 1-2X A DAY / AS NEEDED (PRN)
     Route: 061
     Dates: start: 20170613, end: 20180115

REACTIONS (5)
  - Product odour abnormal [Unknown]
  - Skin atrophy [Recovered/Resolved]
  - Seborrhoea [Unknown]
  - Product physical consistency issue [Unknown]
  - Product quality issue [Unknown]

NARRATIVE: CASE EVENT DATE: 20180115
